FAERS Safety Report 25007341 (Version 1)
Quarter: 2025Q1

REPORT INFORMATION
  Report Type: Spontaneous
  Country: FR (occurrence: FR)
  Receive Date: 20250225
  Receipt Date: 20250225
  Transmission Date: 20250409
  Serious: Yes (Life-Threatening, Hospitalization, Other)
  Sender: AUROBINDO
  Company Number: FR-AFSSAPS-GR2025000200

PATIENT
  Age: 43 Year
  Sex: Female
  Weight: 60 kg

DRUGS (3)
  1. AMLODIPINE [Suspect]
     Active Substance: AMLODIPINE BESYLATE
     Indication: Product used for unknown indication
     Dosage: 300 MILLIGRAM, ONCE A DAY
     Route: 048
     Dates: start: 20250115, end: 20250115
  2. BROMAZEPAM [Suspect]
     Active Substance: BROMAZEPAM
     Indication: Product used for unknown indication
     Dosage: 180 MILLIGRAM, ONCE A DAY
     Route: 048
     Dates: start: 20250115, end: 20250115
  3. AMITRIPTYLINE [Suspect]
     Active Substance: AMITRIPTYLINE
     Indication: Product used for unknown indication
     Dosage: 1500 MILLIGRAM, ONCE A DAY
     Route: 048
     Dates: start: 20250115, end: 20250115

REACTIONS (3)
  - Coma [Recovered/Resolved]
  - Poisoning deliberate [Recovered/Resolved]
  - Vasoplegia syndrome [Recovered/Resolved]

NARRATIVE: CASE EVENT DATE: 20250115
